FAERS Safety Report 8080271-3 (Version None)
Quarter: 2012Q1

REPORT INFORMATION
  Report Type: 
  Country: None (occurrence: None)
  Receive Date: 20120130
  Receipt Date: 20120125
  Transmission Date: 20120608
  Serious: Yes (Hospitalization)
  Sender: FDA-Public Use
  Company Number: JP-BAYER-200914351BYL

PATIENT
  Age: 74 Year
  Sex: Male
  Weight: 43 kg

DRUGS (2)
  1. NEXAVAR [Suspect]
     Indication: HEPATIC NEOPLASM MALIGNANT
     Route: 048
     Dates: start: 20091013, end: 20091024
  2. NEXAVAR [Suspect]
     Route: 048
     Dates: start: 20091025, end: 20091026

REACTIONS (1)
  - STEVENS-JOHNSON SYNDROME [None]
